FAERS Safety Report 14581835 (Version 1)
Quarter: 2018Q1

REPORT INFORMATION
  Report Type: Spontaneous
  Country: US (occurrence: US)
  Receive Date: 20180227
  Receipt Date: 20180227
  Transmission Date: 20180509
  Serious: Yes (Disabling)
  Sender: FDA-Public Use
  Company Number: None

PATIENT
  Age: 40 Year
  Sex: Female
  Weight: 95.71 kg

DRUGS (2)
  1. LEVOTHYROXINE. [Concomitant]
     Active Substance: LEVOTHYROXINE
  2. PARAGARD T 380A [Suspect]
     Active Substance: COPPER

REACTIONS (18)
  - Irritability [None]
  - Weight loss poor [None]
  - Depression [None]
  - Partner stress [None]
  - Fungal infection [None]
  - Lichen sclerosus [None]
  - Mood swings [None]
  - Dysmenorrhoea [None]
  - Weight increased [None]
  - Menorrhagia [None]
  - Breast pain [None]
  - Urinary tract infection [None]
  - Candida infection [None]
  - Back pain [None]
  - Palpitations [None]
  - Breast tenderness [None]
  - Feeling abnormal [None]
  - Libido decreased [None]

NARRATIVE: CASE EVENT DATE: 20161116
